FAERS Safety Report 7497745-6 (Version None)
Quarter: 2011Q2

REPORT INFORMATION
  Report Type: 
  Country: None (occurrence: None)
  Receive Date: 20110523
  Receipt Date: 20110513
  Transmission Date: 20111010
  Serious: Yes (Other)
  Sender: FDA-Public Use
  Company Number: US-RB-025595-11

PATIENT
  Age: 61 Year
  Sex: Female

DRUGS (4)
  1. CLONAZEPAM [Concomitant]
     Indication: ANXIETY
     Dosage: DOSING INFORMATION UNKNOWN
     Route: 048
  2. SUBOXONE [Suspect]
     Indication: DRUG DEPENDENCE
     Dosage: SUBLINGUAL FILM
     Route: 060
     Dates: start: 20110509
  3. SUBOXONE [Suspect]
     Indication: DRUG DEPENDENCE
     Dosage: 16-20 MG DAILY
     Route: 060
     Dates: start: 20110324, end: 20110508
  4. SUBOXONE [Suspect]
     Route: 060
     Dates: start: 20110509

REACTIONS (8)
  - UNDERDOSE [None]
  - BALANCE DISORDER [None]
  - DIZZINESS [None]
  - IMPAIRED DRIVING ABILITY [None]
  - EMOTIONAL DISORDER [None]
  - WRONG TECHNIQUE IN DRUG USAGE PROCESS [None]
  - HALLUCINATION [None]
  - DRUG WITHDRAWAL SYNDROME [None]
